FAERS Safety Report 18049827 (Version 1)
Quarter: 2020Q3

REPORT INFORMATION
  Report Type: Spontaneous
  Country: GB (occurrence: GB)
  Receive Date: 20200721
  Receipt Date: 20200721
  Transmission Date: 20201103
  Serious: Yes (Hospitalization, Other)
  Sender: FDA-Public Use
  Company Number: GB-ASTRAZENECA-2020SE89286

PATIENT
  Sex: Female

DRUGS (2)
  1. ZOLOFT [Concomitant]
     Active Substance: SERTRALINE HYDROCHLORIDE
  2. SEROQUEL [Suspect]
     Active Substance: QUETIAPINE FUMARATE
     Dosage: 100.0MG UNKNOWN
     Route: 048
     Dates: start: 20200601

REACTIONS (10)
  - Suicidal behaviour [Unknown]
  - Seizure [Unknown]
  - Orthostatic hypotension [Unknown]
  - Heart rate increased [Unknown]
  - Injury [Unknown]
  - Insomnia [Unknown]
  - Suicidal ideation [Unknown]
  - Mood swings [Unknown]
  - Fatigue [Unknown]
  - Dizziness [Unknown]

NARRATIVE: CASE EVENT DATE: 20200601
